FAERS Safety Report 12355463 (Version 1)
Quarter: 2016Q2

REPORT INFORMATION
  Report Type: Spontaneous
  Country: US (occurrence: US)
  Receive Date: 20160511
  Receipt Date: 20160511
  Transmission Date: 20160815
  Serious: No
  Sender: FDA-Public Use
  Company Number: US-BRISTOL-MYERS SQUIBB COMPANY-BMS-2016-033686

PATIENT
  Sex: Female

DRUGS (1)
  1. ELIQUIS [Suspect]
     Active Substance: APIXABAN
     Indication: PRODUCT USE ISSUE
     Dosage: UNK, BID
     Route: 048
     Dates: start: 2015

REACTIONS (7)
  - Swelling face [Unknown]
  - Hypersensitivity [Unknown]
  - Off label use [Unknown]
  - Contusion [Unknown]
  - Dysgeusia [Unknown]
  - Metrorrhagia [Unknown]
  - Pruritus [Unknown]
